FAERS Safety Report 15866626 (Version 1)
Quarter: 2019Q1

REPORT INFORMATION
  Report Type: Spontaneous
  Country: JP (occurrence: JP)
  Receive Date: 20190125
  Receipt Date: 20190125
  Transmission Date: 20190417
  Serious: Yes (Other)
  Sender: FDA-Public Use
  Company Number: JP-TEVA-2019-JP-1003310

PATIENT
  Age: 35 Year
  Sex: Female

DRUGS (3)
  1. PREDNISOLONE. [Suspect]
     Active Substance: PREDNISOLONE
     Indication: ASTHMA
     Route: 065
  2. OMALIZUMAB. [Concomitant]
     Active Substance: OMALIZUMAB
     Indication: ASTHMA
     Route: 065
  3. METHYLPREDNISOLONE. [Suspect]
     Active Substance: METHYLPREDNISOLONE
     Indication: ASTHMA
     Dosage: 32 MILLIGRAM DAILY; SCHEDULED FOR 4 DAYS (3 DAYS PRIOR TO PROCEDURE TO 1 DAY FOLLOWING THE PROCEDURE
     Route: 065

REACTIONS (3)
  - Aspergillus infection [Recovered/Resolved]
  - Bronchitis [Recovered/Resolved]
  - Nocardiosis [Recovered/Resolved]
